FAERS Safety Report 5416371-3 (Version None)
Quarter: 2007Q3

REPORT INFORMATION
  Report Type: 
  Country: None (occurrence: None)
  Receive Date: 20070718
  Receipt Date: 20060717
  Transmission Date: 20080115
  Serious: Yes (Hospitalization)
  Sender: FDA-Public Use
  Company Number: 2006048938

PATIENT
  Age: 53 Year
  Sex: Female
  Weight: 72.5755 kg

DRUGS (2)
  1. CELEBREX [Suspect]
     Indication: ARTHRITIS
     Dosage: 200 TO 400 MG (200 MG, 1 OR 2 TIMES A DAY)
     Dates: start: 20030314, end: 20041201
  2. CELEBREX [Suspect]
     Indication: INFLAMMATION
     Dosage: 200 TO 400 MG (200 MG, 1 OR 2 TIMES A DAY)
     Dates: start: 20030314, end: 20041201

REACTIONS (1)
  - MYOCARDIAL INFARCTION [None]
